FAERS Safety Report 24573258 (Version 1)
Quarter: 2024Q4

REPORT INFORMATION
  Report Type: Spontaneous
  Country: CA (occurrence: CA)
  Receive Date: 20241101
  Receipt Date: 20241101
  Transmission Date: 20250115
  Serious: Yes (Other)
  Sender: ANI
  Company Number: CA-ANIPHARMA-2024-CA-004565

PATIENT
  Sex: Female

DRUGS (14)
  1. ARIMIDEX [Suspect]
     Active Substance: ANASTROZOLE
     Indication: Ovarian cancer
     Route: 048
  2. PANTOPRAZOLE [Concomitant]
     Active Substance: PANTOPRAZOLE
  3. PREGABALIN [Concomitant]
     Active Substance: PREGABALIN
  4. ALBUTEROL [Concomitant]
     Active Substance: ALBUTEROL
  5. DULOXETINE [Concomitant]
     Active Substance: DULOXETINE
  6. UMECLIDINIUM BROMIDE [Concomitant]
     Active Substance: UMECLIDINIUM BROMIDE
  7. LETROZOLE [Suspect]
     Active Substance: LETROZOLE
  8. APIXABAN [Concomitant]
     Active Substance: APIXABAN
  9. BISOPROLOL [Concomitant]
     Active Substance: BISOPROLOL\BISOPROLOL FUMARATE
  10. CALCIUM CARBONATE [Concomitant]
     Active Substance: CALCIUM CARBONATE
  11. CELECOXIB [Concomitant]
     Active Substance: CELECOXIB
  12. FERROUS SULFATE [Concomitant]
     Active Substance: FERROUS SULFATE
  13. FUROSEMIDE [Concomitant]
     Active Substance: FUROSEMIDE
  14. ISOSORBIDE MONONITRATE [Concomitant]
     Active Substance: ISOSORBIDE MONONITRATE

REACTIONS (4)
  - Drug intolerance [Unknown]
  - Malignant neoplasm progression [Unknown]
  - Metastatic neoplasm [Unknown]
  - Product use in unapproved indication [Unknown]
